FAERS Safety Report 23315549 (Version 2)
Quarter: 2023Q4

REPORT INFORMATION
  Report Type: Spontaneous
  Country: US (occurrence: US)
  Receive Date: 20231219
  Receipt Date: 20231220
  Transmission Date: 20240110
  Serious: No
  Sender: FDA-Public Use
  Company Number: US-ORG100016242-2023000246

PATIENT
  Sex: Female

DRUGS (2)
  1. EXPAREL [Suspect]
     Active Substance: BUPIVACAINE
     Indication: Dental care
     Dosage: DOSE UNKNOWN TO REPORTER, ONE-TIME ADMINISTRATION
     Route: 065
     Dates: start: 202308, end: 202308
  2. UNSPECIFIED INGREDIENT [Suspect]
     Active Substance: UNSPECIFIED INGREDIENT
     Indication: Dental care
     Dosage: NOT PROVIDED
     Route: 065
     Dates: start: 202308, end: 202308

REACTIONS (1)
  - Urticaria [Recovered/Resolved]

NARRATIVE: CASE EVENT DATE: 20230801
